FAERS Safety Report 10204189 (Version 1)
Quarter: 2014Q2

REPORT INFORMATION
  Report Type: Spontaneous
  Country: ES (occurrence: ES)
  Receive Date: 20140529
  Receipt Date: 20140529
  Transmission Date: 20141212
  Serious: Yes (Other)
  Sender: FDA-Public Use
  Company Number: ES-ACTAVIS-2014-11383

PATIENT
  Age: 20 Month
  Sex: Female

DRUGS (3)
  1. PHENYTOIN (AMALLC) [Suspect]
     Indication: STATUS EPILEPTICUS
     Dosage: 15 MG/KG, SINGLE; INITIAL LOADING DOSE
     Route: 041
  2. DIAZEPAM [Concomitant]
     Indication: STATUS EPILEPTICUS
     Dosage: 0.5 MG/KG, UNKNOWN
     Route: 054
  3. DIAZEPAM [Concomitant]
     Dosage: 0.3 MG/KG, UNKNOWN
     Route: 042

REACTIONS (6)
  - Nystagmus [Recovered/Resolved]
  - Sedation [Recovered/Resolved]
  - Ataxia [Recovered/Resolved]
  - Dizziness [Recovered/Resolved]
  - Toxicity to various agents [Recovered/Resolved]
  - Anticonvulsant drug level above therapeutic [Recovered/Resolved]
